FAERS Safety Report 6696427-8 (Version None)
Quarter: 2010Q2

REPORT INFORMATION
  Report Type: 
  Country: None (occurrence: None)
  Receive Date: 20100426
  Receipt Date: 20100416
  Transmission Date: 20101027
  Serious: Yes (Death, Hospitalization, Other)
  Sender: FDA-Public Use
  Company Number: US-AMGEN-QUU403370

PATIENT
  Sex: Female
  Weight: 61.88 kg

DRUGS (19)
  1. NPLATE [Suspect]
     Indication: IDIOPATHIC THROMBOCYTOPENIC PURPURA
     Dates: start: 20090521, end: 20091002
  2. CORTICOSTEROIDS [Concomitant]
     Dates: start: 19991123
  3. PRILOSEC [Concomitant]
  4. ZOCOR [Concomitant]
  5. CRESTOR [Concomitant]
  6. AMLODIPINE [Concomitant]
  7. COREG [Concomitant]
  8. COLACE [Concomitant]
  9. LEVOTHYROXINE [Concomitant]
  10. LASIX [Concomitant]
  11. COMPAZINE [Concomitant]
  12. CALCIUM WITH VITAMIN D [Concomitant]
  13. ALDACTONE [Concomitant]
  14. MAGNESIUM OXIDE [Concomitant]
  15. POTASSIUM [Concomitant]
  16. VITAMIN D [Concomitant]
  17. ALBUTEROL SULATE [Concomitant]
  18. RHINOCORT [Concomitant]
  19. BUPROPION [Concomitant]

REACTIONS (10)
  - ABDOMINAL PAIN [None]
  - ANAEMIA [None]
  - ATELECTASIS [None]
  - DIZZINESS [None]
  - FAECES DISCOLOURED [None]
  - GASTROINTESTINAL HAEMORRHAGE [None]
  - IDIOPATHIC THROMBOCYTOPENIC PURPURA [None]
  - NAUSEA [None]
  - PLEURAL EFFUSION [None]
  - RECTAL HAEMORRHAGE [None]
